FAERS Safety Report 15004140 (Version 1)
Quarter: 2018Q2

REPORT INFORMATION
  Report Type: Spontaneous
  Country: FR (occurrence: FR)
  Receive Date: 20180613
  Receipt Date: 20180613
  Transmission Date: 20180711
  Serious: Yes (Hospitalization)
  Sender: FDA-Public Use
  Company Number: FR-AUROBINDO-AUR-APL-2018-031016

PATIENT
  Age: 69 Year
  Sex: Male

DRUGS (6)
  1. PREDNISONE. [Suspect]
     Active Substance: PREDNISONE
     Indication: PREMEDICATION
     Dosage: 80 MG ON DAY 1, 60 MG ON DAY 2 AND DAY 3
     Route: 048
     Dates: start: 20180507, end: 20180509
  2. ATORVASTATINE                      /01326101/ [Concomitant]
     Active Substance: ATORVASTATIN
     Indication: PRODUCT USED FOR UNKNOWN INDICATION
     Dosage: 40 MILLIGRAM, CYCLICAL
     Route: 048
     Dates: end: 20180511
  3. EMEND [Suspect]
     Active Substance: APREPITANT
     Indication: PREMEDICATION
     Dosage: 125 MG ON DAY 1, 80 MG ON DAY 2 AND DAY 3
     Route: 048
     Dates: start: 20180507, end: 20180509
  4. CISPLATINE MYLAN [Suspect]
     Active Substance: CISPLATIN
     Indication: SQUAMOUS CELL CARCINOMA
     Dosage: 170 MILLIGRAM, CYCLICAL
     Route: 042
     Dates: start: 20180507, end: 20180507
  5. VENLAFAXINE [Concomitant]
     Active Substance: VENLAFAXINE HYDROCHLORIDE
     Indication: PRODUCT USED FOR UNKNOWN INDICATION
     Dosage: 75 MG + 37.5 MG IN THE EVENING AND DECREASE IN DOSAGE ON 11/05 TO 75 MG
     Route: 048
  6. ZOPHREN                            /00955302/ [Suspect]
     Active Substance: ONDANSETRON
     Indication: PREMEDICATION
     Dosage: 16 MILLIGRAM PER CYCLE, 8 MG MORNING AND EVENING ON DAY 1
     Route: 048
     Dates: start: 20180507, end: 20180507

REACTIONS (1)
  - Acute kidney injury [Not Recovered/Not Resolved]

NARRATIVE: CASE EVENT DATE: 20180511
